FAERS Safety Report 22694864 (Version 3)
Quarter: 2024Q1

REPORT INFORMATION
  Report Type: Spontaneous
  Country: AU (occurrence: None)
  Receive Date: 20230712
  Receipt Date: 20240308
  Transmission Date: 20240410
  Serious: Yes (Other)
  Sender: FDA-Public Use
  Company Number: AU-ROCHE-3350850

PATIENT
  Age: 69 Year
  Sex: Female
  Weight: 68.7 kg

DRUGS (12)
  1. FARICIMAB [Suspect]
     Active Substance: FARICIMAB
     Indication: Diabetic retinal oedema
     Dosage: 1 UNIT (RIGHT EYE FARICIMAB)
     Route: 050
     Dates: start: 20230118
  2. FARICIMAB [Suspect]
     Active Substance: FARICIMAB
     Dosage: 1 UNIT (LEFT EYE FARICIMAB)
     Route: 050
     Dates: start: 20230131
  3. FARICIMAB [Suspect]
     Active Substance: FARICIMAB
     Dosage: 1 UNIT (RIGHT EYE FARICIMAB)
     Route: 050
     Dates: start: 20230215
  4. FARICIMAB [Suspect]
     Active Substance: FARICIMAB
     Dosage: 1 UNIT (LEFT EYE FARICIMAB)
     Route: 050
     Dates: start: 20230228
  5. FARICIMAB [Suspect]
     Active Substance: FARICIMAB
     Dosage: 1 UNIT (RIGHT EYE FARICIMAB)
     Route: 050
     Dates: start: 20230315
  6. FARICIMAB [Suspect]
     Active Substance: FARICIMAB
     Dosage: 1 UNIT (LEFT EYE FARICIMAB)
     Route: 050
     Dates: start: 20230328
  7. PERINDOPRIL ARGININE [Concomitant]
     Active Substance: PERINDOPRIL ARGININE
  8. DIABEX [Concomitant]
     Active Substance: METFORMIN HYDROCHLORIDE
  9. LIPITOR [Concomitant]
     Active Substance: ATORVASTATIN CALCIUM
  10. DIAMOX SEQUELS [Concomitant]
     Active Substance: ACETAZOLAMIDE
  11. MAXIDEX [Concomitant]
     Active Substance: DEXAMETHASONE
  12. LATANOPROST\TIMOLOL MALEATE [Concomitant]
     Active Substance: LATANOPROST\TIMOLOL MALEATE

REACTIONS (7)
  - Joint swelling [Unknown]
  - Vitritis [Unknown]
  - Uveitis [Recovered/Resolved]
  - Visual impairment [Unknown]
  - Staphylococcal infection [Unknown]
  - Proteinuria [Unknown]
  - Diabetic retinal oedema [Unknown]

NARRATIVE: CASE EVENT DATE: 20230426
